FAERS Safety Report 24776770 (Version 2)
Quarter: 2025Q1

REPORT INFORMATION
  Report Type: Spontaneous
  Country: JP (occurrence: JP)
  Receive Date: 20241226
  Receipt Date: 20250109
  Transmission Date: 20250409
  Serious: Yes (Other)
  Sender: ACCORD
  Company Number: JP-Accord-461213

PATIENT
  Age: 67 Year
  Sex: Female
  Weight: 53 kg

DRUGS (2)
  1. CISPLATIN [Suspect]
     Active Substance: CISPLATIN
     Indication: Oesophageal squamous cell carcinoma stage IV
     Dosage: LOW-DOSE FP THERAPY (5- FLUOROURACIL 300 MG/M2/DAY + CDDP 6 MG/M2/DAY, DAYS 1 TO 5, 8 TO 12)
  2. FLUOROURACIL [Suspect]
     Active Substance: FLUOROURACIL
     Indication: Oesophageal squamous cell carcinoma
     Dosage: LOW-DOSE FP THERAPY (5- FLUOROURACIL 300 MG/M2/DAY + CDDP 6 MG/M2/DAY, DAYS 1 TO 5, 8 TO 12)

REACTIONS (2)
  - Oesophagitis [Unknown]
  - Pharyngitis [Unknown]
